FAERS Safety Report 4644572-0 (Version None)
Quarter: 2005Q2

REPORT INFORMATION
  Report Type: 
  Country: None (occurrence: None)
  Receive Date: 20050426
  Receipt Date: 20040728
  Transmission Date: 20051028
  Serious: Yes (Hospitalization)
  Sender: FDA-Public Use
  Company Number: 200412384EU

PATIENT
  Age: 68 Year
  Sex: Male
  Weight: 53 kg

DRUGS (14)
  1. TAXOTERE [Suspect]
     Indication: NON-SMALL CELL LUNG CANCER
     Route: 042
     Dates: start: 20040503, end: 20040719
  2. CISPLATIN [Suspect]
     Indication: NON-SMALL CELL LUNG CANCER
     Route: 042
     Dates: start: 20040503, end: 20040719
  3. RADIOTHERAPY [Suspect]
     Indication: NON-SMALL CELL LUNG CANCER
     Dosage: DOSE: 2 GY
     Dates: start: 20040614, end: 20040719
  4. SYNCEL [Concomitant]
     Indication: OESOPHAGITIS
     Dates: start: 20040517
  5. RABEPRAZOLE SODIUM [Concomitant]
     Indication: OESOPHAGITIS
     Route: 048
     Dates: start: 20040517
  6. AMLOR [Concomitant]
     Indication: HYPERTENSION
     Route: 048
  7. RIVOTRIL [Concomitant]
     Indication: DEPRESSION
     Route: 048
  8. ZOCOR [Concomitant]
     Route: 048
  9. DIOVANE [Concomitant]
     Indication: HYPERTENSION
     Route: 048
  10. MS CONTIN [Concomitant]
     Indication: PAIN
     Route: 048
     Dates: start: 20040712
  11. MORPHINE [Concomitant]
     Indication: PAIN
     Route: 048
     Dates: start: 20040301
  12. MOVICOL [Concomitant]
     Indication: CONSTIPATION PROPHYLAXIS
     Dates: start: 20040701
  13. LYSOMUCIL [Concomitant]
     Indication: DRUG USE FOR UNKNOWN INDICATION
     Route: 048
     Dates: start: 20040701
  14. XYLOCAINE VISCOUS [Concomitant]
     Indication: PAIN
     Route: 048
     Dates: start: 20040701

REACTIONS (4)
  - ANOREXIA [None]
  - DYSPHAGIA [None]
  - OESOPHAGITIS [None]
  - SOMNOLENCE [None]
